FAERS Safety Report 7933782-2 (Version None)
Quarter: 2011Q4

REPORT INFORMATION
  Report Type: 
  Country: None (occurrence: None)
  Receive Date: 20111122
  Receipt Date: 20111107
  Transmission Date: 20120403
  Serious: Yes (Hospitalization, Other)
  Sender: FDA-Public Use
  Company Number: JP-ROCHE-1010567

PATIENT
  Age: 47 Year
  Sex: Male
  Weight: 64 kg

DRUGS (45)
  1. CELLCEPT [Suspect]
     Indication: PROPHYLAXIS AGAINST TRANSPLANT REJECTION
     Route: 048
     Dates: start: 20051017, end: 20051017
  2. CELLCEPT [Suspect]
     Dates: start: 20051101, end: 20051102
  3. CELLCEPT [Suspect]
     Dates: start: 20060228, end: 20060420
  4. CYCLOSPORINE [Suspect]
     Indication: PROPHYLAXIS AGAINST TRANSPLANT REJECTION
     Route: 048
     Dates: start: 20051021, end: 20070411
  5. MILRILA [Concomitant]
     Route: 042
     Dates: end: 20051024
  6. NORVASC [Concomitant]
     Route: 048
     Dates: start: 20051109
  7. ASPIRIN [Concomitant]
     Route: 048
     Dates: start: 20051031
  8. CELLCEPT [Suspect]
     Dates: start: 20051103, end: 20051110
  9. CELLCEPT [Suspect]
     Dates: start: 20051112, end: 20051112
  10. CELLCEPT [Suspect]
     Dates: start: 20051117, end: 20051120
  11. CELLCEPT [Suspect]
     Dates: start: 20060421
  12. SPIRONOLACTONE [Concomitant]
     Dates: start: 20051021, end: 20051104
  13. CELLCEPT [Suspect]
     Dates: start: 20051019, end: 20051019
  14. CELLCEPT [Suspect]
     Dates: start: 20051111, end: 20051111
  15. LASIX [Concomitant]
     Route: 042
     Dates: end: 20051020
  16. CELLCEPT [Suspect]
     Dates: start: 20051025, end: 20051028
  17. CELLCEPT [Suspect]
     Dates: start: 20051113, end: 20051113
  18. CELLCEPT [Suspect]
     Dates: start: 20051114, end: 20051115
  19. CELLCEPT [Suspect]
     Dates: start: 20051201, end: 20051226
  20. CELLCEPT [Suspect]
     Dates: start: 20060217, end: 20060218
  21. CELLCEPT [Suspect]
     Dates: start: 20060219, end: 20060227
  22. VALGANCICLOVIR HYDROCHLORIDE [Suspect]
     Dates: start: 20060228, end: 20060810
  23. TACROLIMUS [Suspect]
     Indication: PROPHYLAXIS AGAINST TRANSPLANT REJECTION
     Route: 048
     Dates: start: 20070411
  24. ENALAPRIL MALEATE [Concomitant]
     Route: 048
     Dates: start: 20051024
  25. FERROUS CITRATE [Concomitant]
     Route: 048
     Dates: start: 20070411, end: 20070514
  26. SANDIMMUNE [Concomitant]
     Dates: start: 20051016, end: 20051024
  27. DIFLUCAN [Concomitant]
     Route: 048
     Dates: start: 20051021, end: 20061018
  28. VENOGLOBULIN [Concomitant]
     Route: 042
     Dates: start: 20071023, end: 20071025
  29. CELLCEPT [Suspect]
     Dates: start: 20051018, end: 20051018
  30. CELLCEPT [Suspect]
     Dates: start: 20051020, end: 20051022
  31. CELLCEPT [Suspect]
     Dates: start: 20051023, end: 20051024
  32. CELLCEPT [Suspect]
     Dates: start: 20051029, end: 20051031
  33. METHYLPREDNISOLONE SODIUM SUCCINATE [Suspect]
     Indication: PROPHYLAXIS AGAINST TRANSPLANT REJECTION
     Route: 042
     Dates: start: 20051014, end: 20051014
  34. PRAVASTATIN SODIUM [Concomitant]
     Dates: start: 20051026
  35. IMMUNE GLOBULIN INTRAVENOUS (HUMAN) [Concomitant]
     Route: 042
     Dates: end: 20051018
  36. CELLCEPT [Suspect]
     Dates: start: 20051121, end: 20051130
  37. CELLCEPT [Suspect]
     Dates: start: 20051227, end: 20051229
  38. VALGANCICLOVIR HYDROCHLORIDE [Suspect]
     Indication: PROPHYLAXIS AGAINST TRANSPLANT REJECTION
     Route: 048
     Dates: start: 20051129, end: 20060125
  39. LASIX [Concomitant]
     Dates: start: 20051021
  40. CELLCEPT [Suspect]
     Dates: start: 20051116, end: 20051116
  41. CELLCEPT [Suspect]
     Dates: start: 20051230, end: 20060125
  42. CELLCEPT [Suspect]
     Dates: start: 20060216, end: 20060216
  43. METHYLPREDNISOLONE SODIUM SUCCINATE [Suspect]
     Dates: start: 20051015, end: 20051024
  44. PREDNISOLONE [Suspect]
     Indication: PROPHYLAXIS AGAINST TRANSPLANT REJECTION
     Route: 048
     Dates: start: 20051025, end: 20081005
  45. SULFAMETHOXAZOLE AND TRIMETHOPRIM [Concomitant]
     Route: 048
     Dates: start: 20051024

REACTIONS (6)
  - HALLUCINATION [None]
  - CYTOMEGALOVIRUS TEST POSITIVE [None]
  - BLOOD IMMUNOGLOBULIN G DECREASED [None]
  - UPPER LIMB FRACTURE [None]
  - HALLUCINATION, AUDITORY [None]
  - WHITE BLOOD CELL COUNT DECREASED [None]
